FAERS Safety Report 4955422-7 (Version None)
Quarter: 2006Q1

REPORT INFORMATION
  Report Type: 
  Country: None (occurrence: None)
  Receive Date: 20060322
  Receipt Date: 20060313
  Transmission Date: 20060701
  Serious: Yes (Other)
  Sender: FDA-Public Use
  Company Number: 2006030440

PATIENT
  Age: 78 Year
  Sex: Female

DRUGS (7)
  1. XALATAN [Suspect]
     Indication: GLAUCOMA
  2. ZOLOFT [Suspect]
     Indication: ILL-DEFINED DISORDER
     Dosage: 25 MG
  3. CARDIZEM [Concomitant]
  4. SYNTHROID [Concomitant]
  5. ALL OTHER THERAPEUTIC PRODUCTS [Concomitant]
  6. ALPHAGAN [Concomitant]
  7. COSOPT [Concomitant]

REACTIONS (4)
  - CATARACT OPERATION [None]
  - DEPRESSION [None]
  - GASTRITIS BACTERIAL [None]
  - GLAUCOMA [None]
